FAERS Safety Report 14218694 (Version 2)
Quarter: 2017Q4

REPORT INFORMATION
  Report Type: Report from Study
  Country: US (occurrence: US)
  Receive Date: 20171123
  Receipt Date: 20171129
  Transmission Date: 20180321
  Serious: Yes (Death, Life-Threatening, Other)
  Sender: FDA-Public Use
  Company Number: US-ROCHE-1921482

PATIENT

DRUGS (6)
  1. ALTEPLASE. [Suspect]
     Active Substance: ALTEPLASE
     Indication: ANGINA UNSTABLE
     Dosage: (20 ML OF A 1-MG/ML SOLUTION) THROUGH THE INFUSION CATHETER TO THE LESION IN 2-ML BOLUSES VIA HAND I
     Route: 040
  2. HEPARIN [Suspect]
     Active Substance: HEPARIN SODIUM
     Indication: ANGINA UNSTABLE
     Dosage: (1 5 U/KG/HR) WAS CONTINUED FOR 2 12 HR POST-PROCEDURE, 2-ML BOLUSES OF HEPARIN (250 U/ML) WERE DELI
     Route: 042
  3. NITROGLYCERIN. [Concomitant]
     Active Substance: NITROGLYCERIN
     Route: 022
  4. ASPIRIN. [Concomitant]
     Active Substance: ASPIRIN
     Route: 065
  5. HEPARIN [Suspect]
     Active Substance: HEPARIN SODIUM
     Indication: CORONARY ARTERY THROMBOSIS
  6. ALTEPLASE. [Suspect]
     Active Substance: ALTEPLASE
     Indication: CORONARY ARTERY THROMBOSIS

REACTIONS (7)
  - Death [Fatal]
  - Ischaemia [Unknown]
  - Myocardial infarction [Unknown]
  - Angiopathy [Unknown]
  - Haemorrhage intracranial [Unknown]
  - Haemorrhage [Unknown]
  - Embolism [Unknown]
